FAERS Safety Report 6452199-3 (Version None)
Quarter: 2009Q4

REPORT INFORMATION
  Report Type: 
  Country: None (occurrence: None)
  Receive Date: 20091123
  Receipt Date: 20090910
  Transmission Date: 20100525
  Serious: Yes (Hospitalization)
  Sender: FDA-Public Use
  Company Number: US-AMGEN-QUU363856

PATIENT
  Sex: Male

DRUGS (5)
  1. ENBREL [Suspect]
     Indication: PSORIASIS
     Dates: start: 20060101
  2. AMBIEN [Concomitant]
  3. ZOLPIDEM [Concomitant]
  4. ALISKIREN [Concomitant]
  5. PEPCID [Concomitant]

REACTIONS (1)
  - MYOCARDIAL INFARCTION [None]
